FAERS Safety Report 4555106-3 (Version None)
Quarter: 2005Q1

REPORT INFORMATION
  Report Type: 
  Country: None (occurrence: None)
  Receive Date: 20041228
  Receipt Date: 20041007
  Transmission Date: 20050727
  Serious: Yes (Other)
  Sender: FDA-Public Use
  Company Number: PHEH2004US10787

PATIENT
  Age: 72 Year
  Sex: Female

DRUGS (2)
  1. AREDIA [Suspect]
     Indication: BREAST CANCER METASTATIC
  2. ZOMETA [Suspect]
     Indication: BREAST CANCER METASTATIC

REACTIONS (9)
  - BONE DEBRIDEMENT [None]
  - BONE DISORDER [None]
  - ORAL PAIN [None]
  - OSTEONECROSIS [None]
  - PURULENCE [None]
  - SWELLING [None]
  - TOOTH ABSCESS [None]
  - TOOTH EXTRACTION [None]
  - TOOTHACHE [None]
